FAERS Safety Report 8285651-9 (Version None)
Quarter: 2012Q2

REPORT INFORMATION
  Report Type: 
  Country: None (occurrence: None)
  Receive Date: 20120413
  Receipt Date: 20120123
  Transmission Date: 20120825
  Serious: No
  Sender: FDA-Public Use
  Company Number: US-ASTRAZENECA-2012SE04821

PATIENT
  Age: 62 Year
  Sex: Male

DRUGS (6)
  1. PRILOSEC OTC [Suspect]
     Route: 048
  2. ZEGERID OTC [Concomitant]
  3. OMEPRAZOLE [Suspect]
     Route: 048
  4. CALCIUM CARBONATE [Concomitant]
  5. NEXIUM [Suspect]
     Route: 048
     Dates: start: 20091201
  6. NEXIUM IV [Suspect]
     Route: 042

REACTIONS (2)
  - DYSPEPSIA [None]
  - DRUG INEFFECTIVE [None]
